FAERS Safety Report 9166980 (Version 1)
Quarter: 2013Q1

REPORT INFORMATION
  Report Type: Spontaneous
  Country: GB (occurrence: GB)
  Receive Date: 20130317
  Receipt Date: 20130317
  Transmission Date: 20140127
  Serious: Yes (Death, Other)
  Sender: FDA-Public Use
  Company Number: GB-TEVA-390907ISR

PATIENT
  Age: 52 Year
  Sex: Male
  Weight: 79.37 kg

DRUGS (6)
  1. SIMVASTATIN [Suspect]
     Indication: BLOOD CHOLESTEROL INCREASED
     Dosage: AT NIGHT. ON IT FOR SEVERAL YEARS.
     Route: 048
     Dates: end: 20120607
  2. MIRTAZAPINE [Interacting]
     Indication: DEPRESSION
     Route: 048
     Dates: end: 20120607
  3. FLUOXETINE [Suspect]
     Indication: ANXIETY
  4. LOSARTAN [Concomitant]
  5. CO-TENIDONE [Concomitant]
  6. LOSEC [Concomitant]

REACTIONS (9)
  - Completed suicide [Fatal]
  - Blood creatine phosphokinase increased [Unknown]
  - Inflammation [Unknown]
  - Muscle spasms [Not Recovered/Not Resolved]
  - Myalgia [Not Recovered/Not Resolved]
  - Neck pain [Not Recovered/Not Resolved]
  - Pain in jaw [Not Recovered/Not Resolved]
  - Paraesthesia [Not Recovered/Not Resolved]
  - Drug interaction [Not Recovered/Not Resolved]
